FAERS Safety Report 16692305 (Version 1)
Quarter: 2019Q3

REPORT INFORMATION
  Report Type: Spontaneous
  Country: US (occurrence: US)
  Receive Date: 20190812
  Receipt Date: 20190812
  Transmission Date: 20191004
  Serious: No
  Sender: FDA-Public Use
  Company Number: US-HIKMA PHARMACEUTICALS USA INC.-US-H14001-19-01773

PATIENT
  Age: 86 Year
  Sex: Female

DRUGS (1)
  1. LORAZEPAM. [Suspect]
     Active Substance: LORAZEPAM
     Indication: AGORAPHOBIA
     Route: 065

REACTIONS (3)
  - Anxiety [Unknown]
  - Hot flush [Unknown]
  - Therapeutic product effect decreased [Unknown]
